FAERS Safety Report 7367057-X (Version None)
Quarter: 2011Q1

REPORT INFORMATION
  Report Type: 
  Country: None (occurrence: None)
  Receive Date: 20110322
  Receipt Date: 20110310
  Transmission Date: 20110831
  Serious: Yes (Other)
  Sender: FDA-Public Use
  Company Number: US-JNJFOC-20100210787

PATIENT
  Sex: Female
  Weight: 55.34 kg

DRUGS (1)
  1. ASPIRIN [Suspect]
     Indication: CARDIOVASCULAR EVENT PROPHYLAXIS
     Route: 048

REACTIONS (12)
  - ERUCTATION [None]
  - GAIT DISTURBANCE [None]
  - AMNESIA [None]
  - FLATULENCE [None]
  - MALAISE [None]
  - DIARRHOEA [None]
  - VISION BLURRED [None]
  - GASTRITIS [None]
  - PRODUCT QUALITY ISSUE [None]
  - OESOPHAGITIS [None]
  - FATIGUE [None]
  - PHOTOSENSITIVITY REACTION [None]
